FAERS Safety Report 6852514-2 (Version None)
Quarter: 2010Q3

REPORT INFORMATION
  Report Type: 
  Country: None (occurrence: None)
  Receive Date: 20100717
  Receipt Date: 20071114
  Transmission Date: 20110219
  Serious: No
  Sender: FDA-Public Use
  Company Number: US-PFIZER INC-2007097989

PATIENT
  Sex: Male
  Weight: 100 kg

DRUGS (5)
  1. CHANTIX [Suspect]
     Indication: SMOKING CESSATION THERAPY
     Route: 048
     Dates: start: 20071023, end: 20071030
  2. ANDROGEL [Concomitant]
  3. FLONASE [Concomitant]
  4. ACETYLSALICYLIC ACID [Concomitant]
  5. UROXATRAL [Concomitant]

REACTIONS (1)
  - SLEEP DISORDER [None]
